FAERS Safety Report 6155164-9 (Version None)
Quarter: 2009Q2

REPORT INFORMATION
  Report Type: 
  Country: None (occurrence: None)
  Receive Date: 20090415
  Receipt Date: 20090408
  Transmission Date: 20091009
  Serious: Yes (Hospitalization)
  Sender: FDA-Public Use
  Company Number: FR-JNJFOC-20090402587

PATIENT
  Sex: Female
  Weight: 5 kg

DRUGS (1)
  1. RISPERDAL [Suspect]
     Indication: WRONG DRUG ADMINISTERED
     Dosage: SINGLE DOSE OF 5 ML (CONCENTRATION: 1 MG/ML)
     Route: 048

REACTIONS (2)
  - TACHYCARDIA [None]
  - WRONG DRUG ADMINISTERED [None]
